FAERS Safety Report 18644078 (Version 1)
Quarter: 2020Q4

REPORT INFORMATION
  Report Type: Spontaneous
  Country: US (occurrence: US)
  Receive Date: 20201221
  Receipt Date: 20201221
  Transmission Date: 20210114
  Serious: Yes (Other)
  Sender: FDA-Public Use
  Company Number: US-BAYER-2020-272762

PATIENT
  Sex: Female

DRUGS (1)
  1. MEXSANA MEDICATED [Suspect]
     Active Substance: STARCH, CORN
     Indication: THERAPEUTIC SKIN CARE TOPICAL
     Dosage: UNK UNK, PRN
     Route: 061
     Dates: end: 20201209

REACTIONS (2)
  - Drug dependence [Unknown]
  - Product administered at inappropriate site [Unknown]
